FAERS Safety Report 7182922-4 (Version None)
Quarter: 2010Q4

REPORT INFORMATION
  Report Type: 
  Country: None (occurrence: None)
  Receive Date: 20101209
  Receipt Date: 20101125
  Transmission Date: 20110411
  Serious: Yes (Other)
  Sender: FDA-Public Use
  Company Number: GB-1184226

PATIENT
  Age: 49 Year
  Sex: Female

DRUGS (1)
  1. MAXIDEX [Suspect]
     Indication: UVEITIS
     Dosage: Q1H FOR FEW DAYS; THEN Q2H FOR FEW DAYS; THEN  TAPERING DOWN
     Dates: start: 20080201

REACTIONS (4)
  - MEMORY IMPAIRMENT [None]
  - NAUSEA [None]
  - RETINAL SCAR [None]
  - VISUAL ACUITY REDUCED [None]
